FAERS Safety Report 10061212 (Version 1)
Quarter: 2014Q2

REPORT INFORMATION
  Report Type: Spontaneous
  Country: GB (occurrence: GB)
  Receive Date: 20140407
  Receipt Date: 20140407
  Transmission Date: 20141212
  Serious: Yes (Hospitalization)
  Sender: FDA-Public Use
  Company Number: PHHY2014GB036818

PATIENT
  Age: 86 Year
  Sex: Female

DRUGS (10)
  1. FLUOXETINE [Suspect]
     Dosage: 20 MG, QD
     Route: 048
  2. WARFARIN [Suspect]
     Route: 048
  3. DIGOXIN [Concomitant]
     Dosage: 125 UG, QD
     Route: 048
  4. MORPHINE [Concomitant]
     Dosage: 20 MG, BID, AS REQUIRED
     Route: 048
  5. SIMVASTATIN [Concomitant]
     Dosage: 40 MG, QD, AT NIGHT
  6. FUROSEMIDE [Concomitant]
     Dosage: 20 MG, BID
  7. GLYCERYL TRINITRATE [Concomitant]
     Dosage: UNK
  8. SENNA [Concomitant]
     Dosage: 15 MG, QD, AT NIGHT
  9. SODIUM CHLORIDE [Concomitant]
     Dosage: NACL 600 MG M/R
  10. ORAMORPH [Concomitant]
     Dosage: UNK

REACTIONS (2)
  - Chest pain [Unknown]
  - Gastrointestinal haemorrhage [Unknown]
